FAERS Safety Report 13610370 (Version 1)
Quarter: 2017Q2

REPORT INFORMATION
  Report Type: Spontaneous
  Country: US (occurrence: US)
  Receive Date: 20170602
  Receipt Date: 20170602
  Transmission Date: 20170830
  Serious: Yes (Life-Threatening, Hospitalization)
  Sender: FDA-Public Use
  Company Number: None

PATIENT
  Age: 63 Year
  Sex: Female
  Weight: 62.6 kg

DRUGS (1)
  1. DAPAGLIFLOZIN [Suspect]
     Active Substance: DAPAGLIFLOZIN
     Indication: DIABETES MELLITUS
     Route: 048
     Dates: start: 20170313, end: 20170315

REACTIONS (5)
  - Metabolic acidosis [None]
  - Abdominal pain [None]
  - Vomiting [None]
  - Nausea [None]
  - Diabetic ketoacidosis [None]

NARRATIVE: CASE EVENT DATE: 20170315
